FAERS Safety Report 19137795 (Version 1)
Quarter: 2021Q2

REPORT INFORMATION
  Report Type: Other
  Country: ES (occurrence: ES)
  Receive Date: 20210415
  Receipt Date: 20210415
  Transmission Date: 20210717
  Serious: Yes (Hospitalization)
  Sender: FDA-Public Use
  Company Number: ES-MACLEODS PHARMACEUTICALS US LTD-MAC2021030759

PATIENT

DRUGS (8)
  1. ADIRO [Concomitant]
     Active Substance: ASPIRIN
     Indication: PRODUCT USED FOR UNKNOWN INDICATION
     Dosage: UNK UNK, QD, 1 COMP/24H, 30 TABLETS, (POLYPROPYLENE ? ALUMINUM)
     Route: 065
     Dates: start: 20190708
  2. METFORMINA AUROVITAS [Concomitant]
     Indication: PRODUCT USED FOR UNKNOWN INDICATION
     Dosage: 1 DOSAGE FORM, TID, 50 TABLETS
     Route: 065
     Dates: start: 20070206
  3. CLOPIDOGREL AUROVITAS [Concomitant]
     Indication: PRODUCT USED FOR UNKNOWN INDICATION
     Dosage: 1 DOSAGE FORM, QD, TABLETS COATED WITH EFG FILM, 28 TABLETS
     Route: 065
     Dates: start: 20190802
  4. IRBESARTAN/HYDROCHLOROTHIAZIDE 300/12.5 MG [Suspect]
     Active Substance: HYDROCHLOROTHIAZIDE\IRBESARTAN
     Indication: PRODUCT USED FOR UNKNOWN INDICATION
     Dosage: 1 DOSAGE FORM, QD, TABLETS COATED WITH EFG FILM, IRBESARTAN/HYDROCHLOROTHIAZIDE SUN, 28 TABLETS
     Route: 065
     Dates: start: 20190904, end: 20191014
  5. BISOPROLOL AUROVITAS [Concomitant]
     Indication: PRODUCT USED FOR UNKNOWN INDICATION
     Dosage: 1 DOSAGE FORM, QD, TABLETS COATED WITH EFG FILM, 28 TABLETS
     Route: 065
     Dates: start: 20190708
  6. SUTRIL NEO [Suspect]
     Active Substance: TORSEMIDE
     Indication: PRODUCT USED FOR UNKNOWN INDICATION
     Dosage: UNK UNK, QD, 1 COMP/24H, 30 TABLETS
     Route: 065
     Dates: start: 20190904
  7. ATORVASTATIN ALTER [Concomitant]
     Indication: PRODUCT USED FOR UNKNOWN INDICATION
     Dosage: UNK, TABLETS COATED WITH EFG FILM, 28 TABLETS
     Route: 065
     Dates: start: 20110111
  8. TARDYFERON [Concomitant]
     Active Substance: FERROUS SULFATE
     Indication: PRODUCT USED FOR UNKNOWN INDICATION
     Dosage: UNK UNK, QD, 1 COMP/24H, 30 TABLETS
     Route: 065
     Dates: start: 20130906

REACTIONS (1)
  - Hypomagnesaemia [Recovered/Resolved]

NARRATIVE: CASE EVENT DATE: 20191013
